FAERS Safety Report 22347828 (Version 2)
Quarter: 2023Q2

REPORT INFORMATION
  Report Type: Spontaneous
  Country: US (occurrence: US)
  Receive Date: 20230522
  Receipt Date: 20230523
  Transmission Date: 20230721
  Serious: Yes (Other)
  Sender: FDA-Public Use
  Company Number: None

PATIENT
  Age: 28 Year
  Sex: Male

DRUGS (3)
  1. SPIRONOLACTONE [Suspect]
     Active Substance: SPIRONOLACTONE
     Indication: Transgender hormonal therapy
     Dosage: UNK, UNK
  2. DROSPIRENONE AND ETHINYL ESTRADIOL [Suspect]
     Active Substance: DROSPIRENONE\ETHINYL ESTRADIOL
     Indication: Transgender hormonal therapy
     Dosage: UNK ,UNK
  3. PROGESTERONE [Suspect]
     Active Substance: PROGESTERONE
     Indication: Transgender hormonal therapy
     Dosage: UNK, UNK

REACTIONS (2)
  - Disease progression [Unknown]
  - Keratoconus [Unknown]
